FAERS Safety Report 25276515 (Version 1)
Quarter: 2025Q2

REPORT INFORMATION
  Report Type: Report from Study
  Country: KR (occurrence: KR)
  Receive Date: 20250507
  Receipt Date: 20250507
  Transmission Date: 20250716
  Serious: Yes (Other)
  Sender: Haleon PLC
  Company Number: KR-HALEON-2240597

PATIENT
  Age: 87 Year
  Sex: Male

DRUGS (2)
  1. IBUPROFEN [Suspect]
     Active Substance: IBUPROFEN
     Indication: Product used for unknown indication
  2. IBUPROFEN [Suspect]
     Active Substance: IBUPROFEN

REACTIONS (6)
  - Anaphylactic reaction [Unknown]
  - Drug hypersensitivity [Unknown]
  - Flushing [Unknown]
  - Pruritus [Unknown]
  - Hypotension [Unknown]
  - Loss of consciousness [Unknown]
